FAERS Safety Report 7415703-4 (Version None)
Quarter: 2011Q2

REPORT INFORMATION
  Report Type: 
  Country: None (occurrence: None)
  Receive Date: 20110414
  Receipt Date: 20110406
  Transmission Date: 20111010
  Serious: Yes (Other)
  Sender: FDA-Public Use
  Company Number: CN-BRISTOL-MYERS SQUIBB COMPANY-15655947

PATIENT
  Age: 72 Year
  Sex: Male

DRUGS (2)
  1. LAMIVUDINE [Suspect]
     Dates: start: 20090101
  2. BARACLUDE [Suspect]
     Indication: HEPATITIS B
     Route: 048
     Dates: start: 20081001

REACTIONS (5)
  - PSYCHOTIC DISORDER [None]
  - SENSATION OF HEAVINESS [None]
  - GAIT DISTURBANCE [None]
  - DIZZINESS [None]
  - HEADACHE [None]
